FAERS Safety Report 17534254 (Version 1)
Quarter: 2020Q1

REPORT INFORMATION
  Report Type: Report from Study
  Country: US (occurrence: US)
  Receive Date: 20200312
  Receipt Date: 20200312
  Transmission Date: 20200409
  Serious: Yes (Other)
  Sender: FDA-Public Use
  Company Number: US-RETROPHIN, INC.-2020RTN00025

PATIENT
  Age: 1 Year
  Sex: Male
  Weight: 13.1 kg

DRUGS (13)
  1. CULTURELLE [Concomitant]
     Active Substance: LACTOBACILLUS RHAMNOSUS
     Dosage: 1 CAPSULES, 1X/DAY
     Route: 048
  2. PEDIASURE PEPTIDE 1.0 CAL [Concomitant]
     Dosage: 3 BOTTLES, 1X/DAY
  3. ZOFRAN [Concomitant]
     Active Substance: ONDANSETRON HYDROCHLORIDE
     Dosage: 2 MG, 2X/DAY
     Route: 048
  4. POLYTRIM [Concomitant]
     Active Substance: POLYMYXIN B SULFATE\TRIMETHOPRIM SULFATE
     Dosage: 1-2 GTT IN BOTH EYES, 4X/DAY FOR 7 DAYS
     Route: 047
  5. UNSPECIFIED PROBIOTIC PRODUCT [Concomitant]
     Dosage: 0.75 TEASPOON, 1X/DAY
     Route: 048
  6. PEDIASURE PEPTIDE 1.0 CAL [Concomitant]
     Dosage: 3 BOTTLES, 1X/DAY
     Route: 048
  7. KEFLEX [Concomitant]
     Active Substance: CEPHALEXIN
     Dosage: 300 MG, 3X/DAY FOR 10 DAYS
     Route: 048
  8. IBUPROFEN. [Concomitant]
     Active Substance: IBUPROFEN
     Dosage: 100 MG, EVERY 6 HOURS AS NEEDED
  9. MULTIVITAMIN WITH FLUORIDE [Concomitant]
     Active Substance: .ALPHA.-TOCOPHEROL\.ALPHA.-TOCOPHEROL ACETATE\.ALPHA.-TOCOPHEROL ACETATE, DL-\ASCORBIC ACID\CHOLECALCIFEROL\COBALAMIN\CYANOCOBALAMIN\FLUORIDE ION\FOLIC ACID\NIACIN\NIACINAMIDE\PYRIDOXINE\PYRIDOXINE HYDROCHLORIDE\RIBOFLAVIN\SODIUM ASCORBATE\SODIUM FLUORIDE\THIAMINE\THIAMINE MONONITRATE\VITAMIN A\VITA
     Dosage: 1 UNK, 1X/DAY
     Route: 048
  10. CULTURELLE [Concomitant]
     Active Substance: LACTOBACILLUS RHAMNOSUS
     Dosage: 1 CAPSULES, 2X/DAY
     Route: 048
  11. KENALOG [Concomitant]
     Active Substance: TRIAMCINOLONE ACETONIDE
     Dosage: APPLY SPARINGLY TO AFFECTED AREA 3X/DAY AS NEEDED
     Route: 061
  12. CHOLIC ACID [Suspect]
     Active Substance: CHOLIC ACID
     Indication: ENZYME ABNORMALITY
     Dosage: 150 MG 1X/DAY IN THE MORINIG, 50 MG 1X/DAY IN THE EVENING
     Route: 048
     Dates: start: 20171004
  13. DESITIN [Concomitant]
     Active Substance: ZINC OXIDE
     Dosage: UNK UNK, AS NEEDED
     Route: 061

REACTIONS (5)
  - Cerebellar ataxia [Not Recovered/Not Resolved]
  - Gene mutation [Not Recovered/Not Resolved]
  - Feeding disorder [Not Recovered/Not Resolved]
  - Dacryostenosis acquired [Not Recovered/Not Resolved]
  - Joint noise [Unknown]

NARRATIVE: CASE EVENT DATE: 20180319
